FAERS Safety Report 5025427-9 (Version None)
Quarter: 2006Q2

REPORT INFORMATION
  Report Type: 
  Country: None (occurrence: None)
  Receive Date: 20060608
  Receipt Date: 20060530
  Transmission Date: 20061013
  Serious: Yes (Other)
  Sender: FDA-Public Use
  Company Number: 2006070425

PATIENT
  Sex: Female
  Weight: 61.2356 kg

DRUGS (7)
  1. LIPITOR [Suspect]
     Indication: BLOOD CHOLESTEROL INCREASED
     Dosage: 40 MG (40 MG, 1 IN 1 D), ORAL
     Route: 048
     Dates: end: 20060501
  2. ZOCOR [Suspect]
     Indication: BLOOD CHOLESTEROL INCREASED
  3. SYNTHROID [Concomitant]
  4. HYZAAR [Concomitant]
  5. ISOSORBIDE MONONITRATE [Concomitant]
  6. LANOXIN [Concomitant]
  7. TOPROL-XL [Concomitant]

REACTIONS (4)
  - CONTUSION [None]
  - CORONARY ARTERY OCCLUSION [None]
  - FALL [None]
  - MYALGIA [None]
